FAERS Safety Report 21718398 (Version 1)
Quarter: 2022Q4

REPORT INFORMATION
  Report Type: Report from Study
  Country: BR (occurrence: BR)
  Receive Date: 20221212
  Receipt Date: 20221212
  Transmission Date: 20230112
  Serious: Yes (Other)
  Sender: FDA-Public Use
  Company Number: BR-ABBVIE-4232092

PATIENT
  Age: 63 Year
  Sex: Female
  Weight: 38 kg

DRUGS (1)
  1. RINVOQ [Suspect]
     Active Substance: UPADACITINIB
     Indication: Rheumatoid arthritis
     Route: 048
     Dates: start: 20210708

REACTIONS (3)
  - Arthropathy [Recovering/Resolving]
  - Pain in extremity [Recovering/Resolving]
  - Weight decreased [Recovering/Resolving]

NARRATIVE: CASE EVENT DATE: 20211201
